FAERS Safety Report 8243539-3 (Version None)
Quarter: 2012Q1

REPORT INFORMATION
  Report Type: 
  Country: None (occurrence: None)
  Receive Date: 20120329
  Receipt Date: 20120322
  Transmission Date: 20120608
  Serious: Yes (Death, Other)
  Sender: FDA-Public Use
  Company Number: PHHY2012JM004830

PATIENT
  Sex: Female

DRUGS (2)
  1. GLEEVEC [Suspect]
     Indication: CHRONIC MYELOID LEUKAEMIA
     Dosage: 200 MG, UNK
     Route: 048
     Dates: start: 20100429, end: 20111101
  2. HYPER-CVAD [Concomitant]

REACTIONS (9)
  - INTRACRANIAL PRESSURE INCREASED [None]
  - LEUKAEMIC INFILTRATION BRAIN [None]
  - WHITE BLOOD CELL COUNT INCREASED [None]
  - DRUG RESISTANCE [None]
  - CHRONIC MYELOID LEUKAEMIA [None]
  - SPLENOMEGALY [None]
  - NO THERAPEUTIC RESPONSE [None]
  - ANAEMIA [None]
  - NEOPLASM MALIGNANT [None]
